FAERS Safety Report 10048939 (Version 1)
Quarter: 2014Q1

REPORT INFORMATION
  Report Type: Spontaneous
  Country: CH (occurrence: CH)
  Receive Date: 20140331
  Receipt Date: 20140331
  Transmission Date: 20141002
  Serious: Yes (Disabling)
  Sender: FDA-Public Use
  Company Number: CH-ACTAVIS-2013-25075

PATIENT
  Age: 89 Year
  Sex: Male

DRUGS (4)
  1. BICALUTAMIDE [Suspect]
     Indication: PROSTATE CANCER
     Dosage: 50 MG, DAILY
     Route: 048
  2. VALSARTAN [Concomitant]
     Indication: PRODUCT USED FOR UNKNOWN INDICATION
     Dosage: UNK, UNKNOWN
     Route: 065
  3. ASPIRIN CARDIO [Concomitant]
     Indication: PRODUCT USED FOR UNKNOWN INDICATION
     Dosage: ONE DAY
     Route: 065
  4. MAGNESIUM [Concomitant]
     Indication: PRODUCT USED FOR UNKNOWN INDICATION
     Dosage: UNK, UNKNOWN
     Route: 065

REACTIONS (1)
  - Disorientation [Unknown]
